FAERS Safety Report 5197738-8 (Version None)
Quarter: 2006Q4

REPORT INFORMATION
  Report Type: 
  Country: None (occurrence: None)
  Receive Date: 20061227
  Receipt Date: 20061213
  Transmission Date: 20070319
  Serious: Yes (Life-Threatening, Hospitalization, Other)
  Sender: FDA-Public Use
  Company Number: 2006073183

PATIENT
  Age: 47 Year
  Sex: Female
  Weight: 55.3 kg

DRUGS (5)
  1. SU-011,248 (SUNITINIB MALATE) [Suspect]
     Indication: RENAL CELL CARCINOMA STAGE UNSPECIFIED
     Dosage: 50 MG (50 MG, 1 IN 1 D), ORAL
     Route: 048
     Dates: start: 20060403, end: 20060604
  2. OXYCODONE HCL [Concomitant]
  3. METOCLOPRAMIDE [Concomitant]
  4. TRAMADOL HCL [Concomitant]
  5. ACETAMINOPHEN [Concomitant]

REACTIONS (19)
  - AMMONIA INCREASED [None]
  - ANXIETY [None]
  - BILIARY SEPSIS [None]
  - CONFUSIONAL STATE [None]
  - DEPRESSED LEVEL OF CONSCIOUSNESS [None]
  - DISSEMINATED INTRAVASCULAR COAGULATION [None]
  - DYSPHAGIA [None]
  - GENERAL PHYSICAL HEALTH DETERIORATION [None]
  - HEART RATE INCREASED [None]
  - HEPATIC FAILURE [None]
  - INCONTINENCE [None]
  - LACTIC ACIDOSIS [None]
  - LIVER DISORDER [None]
  - MELAENA [None]
  - METABOLIC ACIDOSIS [None]
  - PYREXIA [None]
  - THROMBOCYTOPENIA [None]
  - THYROTOXIC CRISIS [None]
  - TREMOR [None]
